FAERS Safety Report 20863513 (Version 3)
Quarter: 2022Q3

REPORT INFORMATION
  Report Type: Spontaneous
  Country: US (occurrence: US)
  Receive Date: 20220523
  Receipt Date: 20220727
  Transmission Date: 20221027
  Serious: No
  Sender: FDA-Public Use
  Company Number: US-PFIZER INC-202200719747

PATIENT
  Age: 67 Year
  Sex: Female
  Weight: 104.31 kg

DRUGS (7)
  1. PAXLOVID [Suspect]
     Active Substance: NIRMATRELVIR\RITONAVIR
     Indication: COVID-19 treatment
     Dosage: 6 DF (3 PILLS 150 MG NIRMATRELVIR, 3 PILLS 150 MG RITONAVIR)
     Dates: start: 20220512, end: 20220517
  2. PAXLOVID [Suspect]
     Active Substance: NIRMATRELVIR\RITONAVIR
     Dosage: UNK, 2X/DAY(TWICE A DAY RITONAVIR 100 MG, NIRMATRELVIR 150 MG)
  3. ASPIRIN [Concomitant]
     Active Substance: ASPIRIN
     Dosage: UNK
     Dates: start: 2012
  4. REPATHA [Concomitant]
     Active Substance: EVOLOCUMAB
     Dosage: UNK
     Dates: start: 2012
  5. DULOXETINE [Concomitant]
     Active Substance: DULOXETINE
     Dosage: 80 MG
     Dates: start: 2012
  6. TELMISARTAN [Concomitant]
     Active Substance: TELMISARTAN
     Dosage: 40 MG
     Dates: start: 2012
  7. CARVEDILOL [Concomitant]
     Active Substance: CARVEDILOL
     Dosage: 4.25 X 2
     Dates: start: 2012

REACTIONS (10)
  - Hot flush [Recovered/Resolved]
  - Hyperhidrosis [Recovered/Resolved]
  - Dysgeusia [Recovered/Resolved]
  - Skin odour abnormal [Recovered/Resolved]
  - Gastric disorder [Not Recovered/Not Resolved]
  - Constipation [Recovered/Resolved]
  - Abdominal pain [Recovered/Resolved]
  - Vomiting [Recovered/Resolved]
  - Dizziness [Unknown]
  - Incorrect dose administered [Unknown]

NARRATIVE: CASE EVENT DATE: 20220512
